FAERS Safety Report 21290155 (Version 1)
Quarter: 2022Q3

REPORT INFORMATION
  Report Type: Spontaneous
  Country: US (occurrence: US)
  Receive Date: 20220902
  Receipt Date: 20220902
  Transmission Date: 20221027
  Serious: Yes (Hospitalization, Other)
  Sender: FDA-Public Use
  Company Number: US-ALXN-A202210302

PATIENT
  Age: 54 Year
  Sex: Female

DRUGS (1)
  1. SOLIRIS [Suspect]
     Active Substance: ECULIZUMAB
     Indication: Neuromyelitis optica spectrum disorder
     Dosage: UNK, Q2W
     Route: 042
     Dates: start: 20220606

REACTIONS (4)
  - Pain [Unknown]
  - Myelitis [Unknown]
  - Burning sensation [Recovered/Resolved]
  - Paraesthesia [Unknown]

NARRATIVE: CASE EVENT DATE: 20220718
